FAERS Safety Report 24217319 (Version 3)
Quarter: 2024Q3

REPORT INFORMATION
  Report Type: Report from Study
  Country: JP (occurrence: JP)
  Receive Date: 20240816
  Receipt Date: 20240826
  Transmission Date: 20241017
  Serious: Yes (Other)
  Sender: EISAI
  Company Number: JP-Eisai-202405771_FYC-IIS_P_1

PATIENT
  Age: 74 Year
  Sex: Female

DRUGS (2)
  1. FYCOMPA [Suspect]
     Active Substance: PERAMPANEL
     Indication: Product used for unknown indication
     Dosage: DOSE UNKNOWN
     Route: 048
     Dates: start: 20240209, end: 20240803
  2. ALFACALCIDOL [Concomitant]
     Active Substance: ALFACALCIDOL
     Dosage: AFTER BREAKFAST

REACTIONS (1)
  - Seizure [Recovered/Resolved]
